FAERS Safety Report 14436583 (Version 2)
Quarter: 2021Q2

REPORT INFORMATION
  Report Type: Report from Study
  Country: US (occurrence: US)
  Receive Date: 20180125
  Receipt Date: 20210519
  Transmission Date: 20210716
  Serious: Yes (Other)
  Sender: FDA-Public Use
  Company Number: US-AMGEN-USASL2018008942

PATIENT
  Age: 70 Year
  Sex: Female

DRUGS (1)
  1. NPLATE [Suspect]
     Active Substance: ROMIPLOSTIM
     Indication: IMMUNE THROMBOCYTOPENIA
     Dosage: QWK
     Route: 065
     Dates: start: 2012

REACTIONS (4)
  - Pruritus [Recovered/Resolved]
  - Contusion [Unknown]
  - Platelet count abnormal [Recovering/Resolving]
  - Illness [Recovering/Resolving]
